FAERS Safety Report 4289621-7 (Version None)
Quarter: 2004Q1

REPORT INFORMATION
  Report Type: 
  Country: None (occurrence: None)
  Receive Date: 20040206
  Receipt Date: 20040128
  Transmission Date: 20041129
  Serious: Yes (Hospitalization, Disabling)
  Sender: FDA-Public Use
  Company Number: TCI2001A02047

PATIENT
  Age: 59 Year
  Sex: Female

DRUGS (4)
  1. ACTOS [Suspect]
     Indication: DIABETES MELLITUS NON-INSULIN-DEPENDENT
     Dosage: 15 MG (15 MG, 1 IN 1 D)
     Route: 048
     Dates: start: 20000718, end: 20001027
  2. NOVOLET N (HUMAN INSULIN (GENETICAL RECOMBINATION)) [Concomitant]
  3. GLYBURIDE [Concomitant]
  4. AMLOPDIPINE BESILATE [Concomitant]

REACTIONS (4)
  - DIABETIC RETINOPATHY [None]
  - RETINAL HAEMORRHAGE [None]
  - URINARY TRACT INFECTION [None]
  - VISUAL ACUITY REDUCED [None]
